FAERS Safety Report 22917473 (Version 3)
Quarter: 2023Q4

REPORT INFORMATION
  Report Type: Report from Study
  Country: US (occurrence: US)
  Receive Date: 20230907
  Receipt Date: 20231022
  Transmission Date: 20240109
  Serious: Yes (Other)
  Sender: FDA-Public Use
  Company Number: US-002147023-NVSC2023US190717

PATIENT
  Sex: Male
  Weight: 116.1 kg

DRUGS (8)
  1. COSENTYX [Suspect]
     Active Substance: SECUKINUMAB
     Indication: Psoriasis
     Dosage: UNK
     Route: 065
  2. COSENTYX [Suspect]
     Active Substance: SECUKINUMAB
     Indication: Palmoplantar pustulosis
  3. COSENTYX [Suspect]
     Active Substance: SECUKINUMAB
     Indication: Psoriasis
  4. PREDNISONE [Suspect]
     Active Substance: PREDNISONE
     Indication: Psoriasis
     Dosage: UNK
     Route: 065
  5. PREDNISONE [Suspect]
     Active Substance: PREDNISONE
     Indication: Palmoplantar pustulosis
  6. CLOTRIMAZOLE [Suspect]
     Active Substance: CLOTRIMAZOLE
     Indication: Psoriasis
     Dosage: UNK
     Route: 065
  7. CLOTRIMAZOLE [Suspect]
     Active Substance: CLOTRIMAZOLE
     Indication: Palmoplantar pustulosis
  8. TALTZ [Suspect]
     Active Substance: IXEKIZUMAB
     Indication: Product used for unknown indication
     Dosage: UNK
     Route: 065

REACTIONS (10)
  - Palmoplantar pustulosis [Recovering/Resolving]
  - Rash macular [Unknown]
  - Pain [Not Recovered/Not Resolved]
  - Skin exfoliation [Recovering/Resolving]
  - Pain in extremity [Unknown]
  - Contusion [Not Recovered/Not Resolved]
  - Fatigue [Unknown]
  - Injection site pain [Unknown]
  - Product use in unapproved indication [Unknown]
  - Therapeutic product effect incomplete [Unknown]
